FAERS Safety Report 15100927 (Version 2)
Quarter: 2018Q3

REPORT INFORMATION
  Report Type: Spontaneous
  Country: US (occurrence: US)
  Receive Date: 20180703
  Receipt Date: 20180802
  Transmission Date: 20181010
  Serious: No
  Sender: FDA-Public Use
  Company Number: US-PFIZER INC-2018121506

PATIENT
  Age: 52 Year
  Sex: Female

DRUGS (10)
  1. TAMOXIFEN [Concomitant]
     Active Substance: TAMOXIFEN
     Dosage: UNK
  2. LEXAPRO [Concomitant]
     Active Substance: ESCITALOPRAM OXALATE
     Dosage: UNK
  3. DOCETAXEL SANDOZ [Suspect]
     Active Substance: DOCETAXEL
     Indication: BREAST CANCER FEMALE
     Dosage: 75 MG/M2, 06 CYCLES (EVERY 3 WEEKS)
     Dates: start: 20121026, end: 20130208
  4. DOXIL [Concomitant]
     Active Substance: DOXORUBICIN HYDROCHLORIDE
     Indication: CHEMOTHERAPY
     Dosage: UNK
  5. PERCOCET [Concomitant]
     Active Substance: ACETAMINOPHEN\OXYCODONE HYDROCHLORIDE
     Dosage: UNK
  6. DOCETAXEL. [Suspect]
     Active Substance: DOCETAXEL
     Indication: BREAST CANCER FEMALE
     Dosage: 75 MG/M2, 06 CYCLES (EVERY 3 WEEKS)
     Dates: start: 20121026, end: 20130208
  7. CYTOXAN [Concomitant]
     Active Substance: CYCLOPHOSPHAMIDE
     Indication: CHEMOTHERAPY
     Dosage: UNK
  8. ADRIAMYCIN [Concomitant]
     Active Substance: DOXORUBICIN HYDROCHLORIDE
     Indication: CHEMOTHERAPY
     Dosage: UNK
  9. NEOSAR [Concomitant]
     Active Substance: CYCLOPHOSPHAMIDE
     Indication: CHEMOTHERAPY
     Dosage: UNK
  10. SEROQUEL [Concomitant]
     Active Substance: QUETIAPINE FUMARATE
     Dosage: UNK

REACTIONS (5)
  - Madarosis [Not Recovered/Not Resolved]
  - Hair texture abnormal [Unknown]
  - Alopecia [Not Recovered/Not Resolved]
  - Hair colour changes [Unknown]
  - Hair disorder [Unknown]

NARRATIVE: CASE EVENT DATE: 2012
